FAERS Safety Report 4993635-9 (Version None)
Quarter: 2006Q2

REPORT INFORMATION
  Report Type: 
  Country: None (occurrence: None)
  Receive Date: 20060504
  Receipt Date: 20060504
  Transmission Date: 20061013
  Serious: Yes (Death)
  Sender: FDA-Public Use
  Company Number: None

PATIENT
  Age: 64 Year
  Sex: Female
  Weight: 40.8237 kg

DRUGS (5)
  1. LYRICA [Suspect]
     Indication: NEURALGIA
     Dosage: ORAL TID
     Route: 048
     Dates: start: 20060318
  2. OXYCONTIN [Concomitant]
  3. OXYCODONE [Concomitant]
  4. ZOFRAN [Concomitant]
  5. COMPAZINE [Concomitant]

REACTIONS (6)
  - DYSPNOEA [None]
  - HYPERHIDROSIS [None]
  - HYPERSENSITIVITY [None]
  - JOINT LOCK [None]
  - OEDEMA PERIPHERAL [None]
  - URINE OUTPUT DECREASED [None]
